FAERS Safety Report 23880336 (Version 1)
Quarter: 2024Q2

REPORT INFORMATION
  Report Type: Spontaneous
  Country: US (occurrence: None)
  Receive Date: 20240521
  Receipt Date: 20240521
  Transmission Date: 20240716
  Serious: Yes (Life-Threatening)
  Sender: FDA-Public Use
  Company Number: None

PATIENT
  Age: 52 Year
  Sex: Female
  Weight: 122 kg

DRUGS (1)
  1. TNKASE [Suspect]
     Active Substance: TENECTEPLASE
     Indication: Ischaemic stroke
     Dosage: FREQUENCY : ONCE;?
     Route: 040
     Dates: start: 20240506, end: 20240506

REACTIONS (1)
  - Anaphylactic reaction [None]

NARRATIVE: CASE EVENT DATE: 20240506
